FAERS Safety Report 20371052 (Version 2)
Quarter: 2022Q1

REPORT INFORMATION
  Report Type: Spontaneous
  Country: JP (occurrence: JP)
  Receive Date: 20220124
  Receipt Date: 20220126
  Transmission Date: 20220423
  Serious: Yes (Death)
  Sender: FDA-Public Use
  Company Number: JP-NOVARTISPH-NVSJ2022JP001588

PATIENT
  Age: 46 Year
  Sex: Male

DRUGS (1)
  1. ENTRESTO [Suspect]
     Active Substance: SACUBITRIL\VALSARTAN
     Indication: Cardiac failure chronic
     Dosage: 300 MG,200 MG IN THE MORNING AND 100 MG IN THE EVENING
     Route: 048
     Dates: start: 202110

REACTIONS (1)
  - Death [Fatal]
